FAERS Safety Report 15991708 (Version 1)
Quarter: 2019Q1

REPORT INFORMATION
  Report Type: Spontaneous
  Country: DE (occurrence: DE)
  Receive Date: 20190221
  Receipt Date: 20190221
  Transmission Date: 20190418
  Serious: Yes (Congenital Anomaly)
  Sender: FDA-Public Use
  Company Number: DE-TEVA-2019-DE-1014065

PATIENT
  Age: 0 Year
  Sex: Female
  Weight: 2.73 kg

DRUGS (5)
  1. PREDNISOLON [Suspect]
     Active Substance: PREDNISOLONE
     Indication: CROHN^S DISEASE
     Dosage: 30 [MG/D (BIS 10 MG/D) ]
     Route: 064
     Dates: start: 20170924, end: 20180527
  2. HUMIRA [Suspect]
     Active Substance: ADALIMUMAB
     Indication: CROHN^S DISEASE
     Dosage: 40 [MG/D (1X/WK) ]
     Route: 064
  3. PANTOPRAZOL [Concomitant]
     Active Substance: PANTOPRAZOLE SODIUM
     Indication: DYSPEPSIA
     Dosage: 40 MILLIGRAM DAILY; 40 [MG/D ]
     Route: 064
     Dates: start: 20170924, end: 20171027
  4. FOLIO [Concomitant]
     Active Substance: FOLIC ACID
     Indication: PROPHYLAXIS OF NEURAL TUBE DEFECT
     Dosage: .4 MILLIGRAM DAILY; 0.4 [MG/D ]
     Route: 064
  5. OPIPRAMOL [Concomitant]
     Active Substance: OPIPRAMOL
     Indication: ANXIETY DISORDER
     Dosage: 75 MILLIGRAM DAILY; 75 [MG/D ]
     Route: 064
     Dates: start: 20170924, end: 20171027

REACTIONS (2)
  - Cerebrospinal fluid leakage [Recovered/Resolved]
  - Dermal sinus [Not Recovered/Not Resolved]
